FAERS Safety Report 5499552-2 (Version None)
Quarter: 2007Q4

REPORT INFORMATION
  Report Type: 
  Country: None (occurrence: None)
  Receive Date: 20071026
  Receipt Date: 20071015
  Transmission Date: 20080405
  Serious: Yes (Other)
  Sender: FDA-Public Use
  Company Number: US-SHR-US-2007-039016

PATIENT
  Age: 45 Year
  Sex: Female

DRUGS (3)
  1. BETASERON [Suspect]
     Dosage: 8 MIU, EVERY 2D
     Route: 058
     Dates: start: 20060701
  2. FLEXERIL [Concomitant]
  3. NEURONTIN [Concomitant]

REACTIONS (2)
  - HALLUCINATION [None]
  - MEMORY IMPAIRMENT [None]
